FAERS Safety Report 11982225 (Version 9)
Quarter: 2017Q2

REPORT INFORMATION
  Report Type: Report from Study
  Country: TR (occurrence: TR)
  Receive Date: 20160201
  Receipt Date: 20170517
  Transmission Date: 20170829
  Serious: Yes (Death, Hospitalization)
  Sender: FDA-Public Use
  Company Number: TR-ROCHE-1702568

PATIENT
  Age: 68 Year
  Sex: Male
  Weight: 86 kg

DRUGS (7)
  1. CONTRAMAL [Concomitant]
     Active Substance: TRAMADOL HYDROCHLORIDE
     Indication: PAIN IN EXTREMITY
     Route: 048
     Dates: start: 20160112
  2. SANELOC [Concomitant]
     Active Substance: METOPROLOL
     Indication: CORONARY ARTERY DISEASE
     Route: 048
     Dates: start: 2009
  3. CHLORAMBUCIL [Suspect]
     Active Substance: CHLORAMBUCIL
     Indication: CHRONIC LYMPHOCYTIC LEUKAEMIA
     Dosage: LAST DOSE PRIOR TO SAE ON 29/DEC/2015
     Route: 048
     Dates: start: 20150728
  4. PLAVIX [Concomitant]
     Active Substance: CLOPIDOGREL BISULFATE
     Indication: CORONARY ARTERY DISEASE
     Route: 048
     Dates: start: 2009
  5. OBINUTUZUMAB [Suspect]
     Active Substance: OBINUTUZUMAB
     Indication: CHRONIC LYMPHOCYTIC LEUKAEMIA
     Dosage: LAST DOSE PRIOR TO SAE 15/DEC/2015
     Route: 042
     Dates: start: 20150728
  6. IBRUTINIB [Suspect]
     Active Substance: IBRUTINIB
     Indication: CHRONIC LYMPHOCYTIC LEUKAEMIA
     Dosage: LAST DOSE OF IBRUTINIB PRIOR TO SAE: 22/MAR/2016
     Route: 065
     Dates: start: 20160217
  7. UROREC [Concomitant]
     Active Substance: SILODOSIN
     Indication: BENIGN PROSTATIC HYPERPLASIA
     Route: 048
     Dates: start: 20151209

REACTIONS (2)
  - Chronic lymphocytic leukaemia [Not Recovered/Not Resolved]
  - Mantle cell lymphoma [Fatal]

NARRATIVE: CASE EVENT DATE: 20160126
